FAERS Safety Report 17999179 (Version 1)
Quarter: 2020Q3

REPORT INFORMATION
  Report Type: Spontaneous
  Country: US (occurrence: US)
  Receive Date: 20200708
  Receipt Date: 20200708
  Transmission Date: 20201103
  Serious: Yes (Hospitalization)
  Sender: FDA-Public Use
  Company Number: None

PATIENT
  Age: 56 Year
  Sex: Female

DRUGS (17)
  1. LEVOTHYROXIN [Concomitant]
     Active Substance: LEVOTHYROXINE
  2. BAYER ASA [Concomitant]
  3. CLONAZEPAM. [Concomitant]
     Active Substance: CLONAZEPAM
  4. HYDROCO/APAP [Concomitant]
     Active Substance: ACETAMINOPHEN\HYDROCODONE
  5. ELETRIPTAN. [Concomitant]
     Active Substance: ELETRIPTAN
  6. LISINOPRIL. [Concomitant]
     Active Substance: LISINOPRIL
  7. RELPAX [Concomitant]
     Active Substance: ELETRIPTAN HYDROBROMIDE
  8. OMEPRAZOLE. [Concomitant]
     Active Substance: OMEPRAZOLE
  9. SUDAFD SINUS [Concomitant]
  10. VITAMIN D [Concomitant]
     Active Substance: VITAMIN D NOS
  11. GLATIRAMER 20MG/ML SYR [Suspect]
     Active Substance: GLATIRAMER ACETATE
     Indication: PRODUCT USED FOR UNKNOWN INDICATION
     Dosage: ?          OTHER DOSE:1 SYR (1 ML);?
     Route: 058
     Dates: start: 20190307
  12. CYMBALTA [Concomitant]
     Active Substance: DULOXETINE HYDROCHLORIDE
  13. DULOXETINE. [Concomitant]
     Active Substance: DULOXETINE
  14. METOPROL TAR [Concomitant]
  15. OTEZLA [Concomitant]
     Active Substance: APREMILAST
  16. ATORVASTATIN [Concomitant]
     Active Substance: ATORVASTATIN
  17. METHAMPHETAM [Concomitant]

REACTIONS (1)
  - Sepsis [None]

NARRATIVE: CASE EVENT DATE: 20200626
